FAERS Safety Report 23254426 (Version 2)
Quarter: 2024Q1

REPORT INFORMATION
  Report Type: Report from Study
  Country: FR (occurrence: FR)
  Receive Date: 20231202
  Receipt Date: 20240308
  Transmission Date: 20240409
  Serious: Yes (Hospitalization)
  Sender: FDA-Public Use
  Company Number: FR-ORPHANEU-2021005163

PATIENT

DRUGS (24)
  1. CARBAGLU [Suspect]
     Active Substance: CARGLUMIC ACID
     Indication: Acidosis
     Dosage: 100 MILLIGRAM, QID
     Route: 065
     Dates: start: 20170629
  2. CARBAGLU [Suspect]
     Active Substance: CARGLUMIC ACID
     Dosage: 100 MILLIGRAM, QID
     Route: 065
     Dates: start: 20171229
  3. CARBAGLU [Suspect]
     Active Substance: CARGLUMIC ACID
     Dosage: 200 MILLIGRAM, QID  (LAST ADMINISTARTION BEFORE THE FIRST OCCURRENCCE OF THE EVENT)
     Route: 065
     Dates: start: 20210414
  4. CARBAGLU [Suspect]
     Active Substance: CARGLUMIC ACID
     Dosage: 200 MILLIGRAM, TID (LAST ADMINISTRATION BEFORE THE SECOND OCCURRENCE OF THE EVENT)
     Route: 065
     Dates: start: 20210520
  5. CARBAGLU [Suspect]
     Active Substance: CARGLUMIC ACID
     Dosage: 200 MILLIGRAM, TID, (LAST ADMINISTRATION BEFORE THE SECOND OCCURRENCE OF THE EVENT)
     Route: 065
     Dates: start: 20210605
  6. CARBAGLU [Suspect]
     Active Substance: CARGLUMIC ACID
     Dosage: 200 MILLIGRAM, QID, (LAST ADMINISTRATION BEFORE THE FOURTH OCCURRENCE OF THE EVENT)
     Route: 065
     Dates: start: 20210912
  7. CARBAGLU [Suspect]
     Active Substance: CARGLUMIC ACID
     Dosage: 200 MILLIGRAM, QID, (LAST ADMINISTRATION BEFORE THE OCCURENCE OF SAE)
     Route: 065
     Dates: start: 20211101
  8. CARBAGLU [Suspect]
     Active Substance: CARGLUMIC ACID
     Dosage: 200 MILLIGRAM, QID, (LAST ADMINISTRATION BEFORE THE OCCURENCE OF SAE)
     Route: 065
     Dates: start: 20211119, end: 20211231
  9. CARBAGLU [Suspect]
     Active Substance: CARGLUMIC ACID
     Dosage: 100 MG/KG/DAY
     Route: 065
     Dates: start: 20211104, end: 20211112
  10. FAMOTIDINE [Concomitant]
     Active Substance: FAMOTIDINE
     Indication: Product used for unknown indication
     Dosage: 80 MILLIGRAM
     Route: 065
  11. FAMOTIDINE [Concomitant]
     Active Substance: FAMOTIDINE
     Dosage: 40 MILLIGRAM
  12. ESOMEPRAZOLE SODIUM [Concomitant]
     Active Substance: ESOMEPRAZOLE SODIUM
     Indication: Product used for unknown indication
     Dosage: 20 MILLIGRAM
     Route: 065
  13. LEVOCARNITINE [Concomitant]
     Active Substance: LEVOCARNITINE
     Indication: Product used for unknown indication
     Dosage: 1600 MILLIGRAM
     Route: 065
  14. SODIUM BICARBONATE [Concomitant]
     Active Substance: SODIUM BICARBONATE
     Indication: Product used for unknown indication
     Dosage: 2000 MILLIGRAM
     Route: 065
  15. SODIUM BICARBONATE [Concomitant]
     Active Substance: SODIUM BICARBONATE
     Dosage: 2 GRAM
  16. VALINE [Concomitant]
     Active Substance: VALINE
     Indication: Product used for unknown indication
     Dosage: 300 MILLIGRAM
     Route: 065
  17. VALINE [Concomitant]
     Active Substance: VALINE
     Dosage: 200 MILLIGRAM
  18. ISOLEUCINE [Concomitant]
     Active Substance: ISOLEUCINE
     Indication: Product used for unknown indication
     Dosage: 300 MILLIGRAM
     Route: 065
  19. ISOLEUCINE [Concomitant]
     Active Substance: ISOLEUCINE
     Dosage: 200 MILLIGRAM
  20. CHLORINE [Concomitant]
     Active Substance: CHLORINE
     Indication: Product used for unknown indication
     Dosage: 2 GRAM
     Route: 065
  21. LOXOPROFEN SODIUM [Concomitant]
     Active Substance: LOXOPROFEN SODIUM
     Indication: Product used for unknown indication
     Dosage: 20 MILLIGRAM
     Route: 065
  22. LOXOPROFEN SODIUM [Concomitant]
     Active Substance: LOXOPROFEN SODIUM
     Dosage: 20 MILLIGRAM
  23. PIPERACILLIN SODIUM\TAZOBACTAM SODIUM [Concomitant]
     Active Substance: PIPERACILLIN SODIUM\TAZOBACTAM SODIUM
     Indication: Product used for unknown indication
     Dosage: 200 MG/KG/DAY
     Route: 042
     Dates: start: 20211106, end: 20211110
  24. TARGOCID [Concomitant]
     Active Substance: TEICOPLANIN
     Indication: Product used for unknown indication
     Dosage: UNK
     Route: 042
     Dates: start: 20211106, end: 20211108

REACTIONS (10)
  - Metabolic disorder [Recovered/Resolved]
  - Acute kidney injury [Recovered/Resolved]
  - Ammonia abnormal [Recovered/Resolved]
  - Metabolic disorder [Unknown]
  - Metabolic disorder [Recovered/Resolved]
  - Head injury [Recovered/Resolved]
  - Vomiting [Recovered/Resolved]
  - Vomiting [Recovered/Resolved]
  - Vomiting [Recovered/Resolved]
  - Vomiting [Recovered/Resolved]

NARRATIVE: CASE EVENT DATE: 20210415
